FAERS Safety Report 9088152 (Version 1)
Quarter: 2013Q1

REPORT INFORMATION
  Report Type: Report from Study
  Country: US (occurrence: US)
  Receive Date: 20130201
  Receipt Date: 20130201
  Transmission Date: 20140127
  Serious: No
  Sender: FDA-Public Use
  Company Number: US-ABBOTT-12P-163-1024635-00

PATIENT
  Age: 77 Year
  Sex: Female

DRUGS (5)
  1. HUMIRA [Suspect]
     Indication: CROHN^S DISEASE
     Route: 058
     Dates: start: 20120127
  2. APRISO [Concomitant]
     Indication: COLITIS ULCERATIVE
     Dosage: PILLS
  3. RAMIPRIL [Concomitant]
     Indication: HYPERTENSION
  4. MULTIVITAMIN [Concomitant]
     Indication: PRODUCT USED FOR UNKNOWN INDICATION
     Dosage: DAILY
  5. CALCIUM [Concomitant]
     Indication: SUPPLEMENTATION THERAPY
     Dosage: DAILY

REACTIONS (3)
  - Incorrect dose administered [Not Recovered/Not Resolved]
  - Injection site bruising [Not Recovered/Not Resolved]
  - Wheezing [Unknown]
